FAERS Safety Report 8912694 (Version 1)
Quarter: 2012Q4

REPORT INFORMATION
  Report Type: Report from Study
  Country: US (occurrence: US)
  Receive Date: 20121116
  Receipt Date: 20121116
  Transmission Date: 20130627
  Serious: Yes (Hospitalization, Other)
  Sender: FDA-Public Use
  Company Number: US-PFIZER INC-2012280073

PATIENT
  Age: 18 Year
  Sex: Female
  Weight: 63.9 kg

DRUGS (7)
  1. IRINOTECAN HCL [Suspect]
     Indication: RHABDOMYOSARCOMA
     Dosage: 50 mg/m2
     Route: 042
     Dates: start: 20120406
  2. DOXORUBICIN HCL [Suspect]
     Indication: RHABDOMYOSARCOMA
     Dosage: UNK
     Dates: start: 20120406
  3. CIXUTUMUMAB [Suspect]
     Indication: RHABDOMYOSARCOMA
     Dosage: 9 mg/kg
     Route: 042
     Dates: start: 20120406
  4. VINCRISTINE [Suspect]
     Indication: RHABDOMYOSARCOMA
     Dosage: 0.025 mg/kg
     Route: 042
     Dates: start: 20120406
  5. CYCLOPHOSPHAMIDE [Suspect]
     Indication: RHABDOMYOSARCOMA
     Dosage: 40 mg/kg
     Route: 042
     Dates: start: 20120406
  6. ETOPOSIDE [Suspect]
     Indication: RHABDOMYOSARCOMA
     Dosage: UNK
  7. IFOSFAMIDE [Suspect]
     Indication: RHABDOMYOSARCOMA
     Dosage: UNK

REACTIONS (15)
  - Weight decreased [Recovering/Resolving]
  - Epistaxis [Recovering/Resolving]
  - Pleural effusion [Recovering/Resolving]
  - Rectal fissure [Recovering/Resolving]
  - Oesophagitis [Recovering/Resolving]
  - Nausea [Recovering/Resolving]
  - Vomiting [Recovering/Resolving]
  - Anaemia [Recovering/Resolving]
  - Stomatitis [Recovering/Resolving]
  - Gastric haemorrhage [Recovering/Resolving]
  - Colitis [Recovering/Resolving]
  - Rectal haemorrhage [Recovering/Resolving]
  - Neutrophil count decreased [Recovering/Resolving]
  - Platelet count decreased [Recovering/Resolving]
  - White blood cell count decreased [Recovering/Resolving]
